FAERS Safety Report 10254231 (Version 2)
Quarter: 2014Q3

REPORT INFORMATION
  Report Type: Report from Study
  Country: US (occurrence: US)
  Receive Date: 20140624
  Receipt Date: 20140710
  Transmission Date: 20150326
  Serious: Yes (Other)
  Sender: FDA-Public Use
  Company Number: US-ABBVIE-14P-163-1249077-00

PATIENT
  Age: 43 Year
  Sex: Female
  Weight: 93.07 kg

DRUGS (8)
  1. HYOSCINE [Concomitant]
     Active Substance: SCOPOLAMINE
     Indication: BLADDER SPASM
  2. NORETHINDRONE. [Concomitant]
     Active Substance: NORETHINDRONE
     Indication: HORMONE REPLACEMENT THERAPY
  3. XANAX [Concomitant]
     Active Substance: ALPRAZOLAM
     Indication: ANXIETY
  4. LUPRON DEPOT [Suspect]
     Active Substance: LEUPROLIDE ACETATE
     Indication: ENDOMETRIOSIS
     Dates: start: 201405
  5. DITROPAN [Concomitant]
     Active Substance: OXYBUTYNIN CHLORIDE
     Indication: PRODUCT USED FOR UNKNOWN INDICATION
  6. XANAX [Concomitant]
     Active Substance: ALPRAZOLAM
     Indication: INSOMNIA
  7. NORCO [Concomitant]
     Active Substance: ACETAMINOPHEN\HYDROCODONE BITARTRATE
     Indication: PAIN
  8. CELEXA [Concomitant]
     Active Substance: CITALOPRAM HYDROBROMIDE
     Indication: DEPRESSION

REACTIONS (8)
  - Endometriosis [Unknown]
  - Pelvic cyst [Unknown]
  - Hot flush [Not Recovered/Not Resolved]
  - Renal mass [Recovered/Resolved]
  - Adhesion [Recovered/Resolved]
  - Scar [Not Recovered/Not Resolved]
  - Ovarian remnant syndrome [Recovered/Resolved]
  - Bladder mass [Recovered/Resolved]

NARRATIVE: CASE EVENT DATE: 201405
